FAERS Safety Report 5081533-4 (Version None)
Quarter: 2006Q3

REPORT INFORMATION
  Report Type: 
  Country: None (occurrence: None)
  Receive Date: 20060815
  Receipt Date: 20060815
  Transmission Date: 20061208
  Serious: Yes (Life-Threatening, Hospitalization)
  Sender: FDA-Public Use
  Company Number: None

PATIENT
  Sex: Male
  Weight: 63.6 kg

DRUGS (9)
  1. CARIMUNE [Suspect]
     Indication: LYME DISEASE
     Dosage: 24 GM (7.5%) IV QD
     Route: 042
  2. CARIMUNE [Suspect]
     Indication: MULTIPLE SCLEROSIS
     Dosage: 24 GM (7.5%) IV QD
     Route: 042
  3. CARIMUNE [Suspect]
  4. CARIMUNE [Suspect]
  5. CARIMUNE [Suspect]
  6. ROCEPHIN [Concomitant]
  7. HEPARIN [Concomitant]
  8. COPAXONE [Concomitant]
  9. ACTIGAL [Concomitant]

REACTIONS (1)
  - MYOCARDIAL INFARCTION [None]
